FAERS Safety Report 6218363-3 (Version None)
Quarter: 2009Q2

REPORT INFORMATION
  Report Type: 
  Country: None (occurrence: None)
  Receive Date: 20090604
  Receipt Date: 20090604
  Transmission Date: 20091009
  Serious: Yes (Other)
  Sender: FDA-Public Use
  Company Number: None

PATIENT
  Sex: Female

DRUGS (2)
  1. ZOSYN [Suspect]
     Dates: start: 20090510, end: 20090516
  2. ZOSYN [Suspect]
     Dates: start: 20090510, end: 20090516

REACTIONS (1)
  - BLOOD CREATININE INCREASED [None]
